FAERS Safety Report 12664314 (Version 1)
Quarter: 2016Q3

REPORT INFORMATION
  Report Type: Report from Study
  Country: US (occurrence: US)
  Receive Date: 20160818
  Receipt Date: 20160818
  Transmission Date: 20161109
  Serious: No
  Sender: FDA-Public Use
  Company Number: US-AEGERION PHARMACEUTICAL INC.-AEGR002466

PATIENT
  Age: 24 Year
  Sex: Male
  Weight: 60.77 kg

DRUGS (3)
  1. JUXTAPID [Suspect]
     Active Substance: LOMITAPIDE MESYLATE
     Dosage: VARIOUS STRENGTHS AND INCREMENTS
     Route: 048
     Dates: end: 201512
  2. JUXTAPID [Suspect]
     Active Substance: LOMITAPIDE MESYLATE
     Dosage: 60 MG, QD
     Route: 048
     Dates: start: 201512
  3. JUXTAPID [Suspect]
     Active Substance: LOMITAPIDE MESYLATE
     Indication: TYPE IIA HYPERLIPIDAEMIA
     Dosage: 5 MG, UNK
     Route: 048
     Dates: start: 201212

REACTIONS (2)
  - Gastrointestinal sounds abnormal [Recovered/Resolved]
  - Drug dose omission [Recovered/Resolved]

NARRATIVE: CASE EVENT DATE: 20160308
